FAERS Safety Report 16193804 (Version 1)
Quarter: 2019Q2

REPORT INFORMATION
  Report Type: Spontaneous
  Country: US (occurrence: US)
  Receive Date: 20190413
  Receipt Date: 20190413
  Transmission Date: 20190711
  Serious: Yes (Hospitalization, Other)
  Sender: FDA-Public Use
  Company Number: US-AMGEN-USASP2019056091

PATIENT
  Age: 44 Year
  Sex: Female

DRUGS (22)
  1. DULOXETINE HCL [Concomitant]
     Active Substance: DULOXETINE HYDROCHLORIDE
     Indication: PRODUCT USED FOR UNKNOWN INDICATION
     Dosage: UNK
     Route: 065
  2. TRINTELLIX [Concomitant]
     Active Substance: VORTIOXETINE HYDROBROMIDE
     Dosage: 10 MILLIGRAM, QD
     Route: 048
     Dates: start: 20181109
  3. PROMETRIUM [Concomitant]
     Active Substance: PROGESTERONE
     Dosage: 200 MILLIGRAM, QHS
     Route: 048
     Dates: start: 20190118
  4. METHOTREXATE. [Concomitant]
     Active Substance: METHOTREXATE
     Indication: PRODUCT USED FOR UNKNOWN INDICATION
     Dosage: UNK
     Route: 065
  5. VIIBRYD [Concomitant]
     Active Substance: VILAZODONE HYDROCHLORIDE
     Dosage: UNK
  6. VITAMIN D3 [Concomitant]
     Active Substance: CHOLECALCIFEROL
     Dosage: 3 DOSAGE FORM (2000 UNIT), QD
     Route: 048
     Dates: start: 20171114
  7. OTEZLA [Concomitant]
     Active Substance: APREMILAST
     Dosage: UNK
     Dates: start: 2016, end: 2017
  8. ENBREL [Suspect]
     Active Substance: ETANERCEPT
     Indication: PRODUCT USED FOR UNKNOWN INDICATION
     Dosage: UNK
     Route: 065
  9. CITALOPRAM HYDROBROMIDE. [Concomitant]
     Active Substance: CITALOPRAM HYDROBROMIDE
     Indication: PRODUCT USED FOR UNKNOWN INDICATION
     Dosage: UNK
     Route: 065
  10. PROCTOCORT [HYDROCORTISONE ACETATE] [Concomitant]
     Indication: HAEMORRHOIDS
     Dosage: UNK UNK, BID
     Route: 054
     Dates: start: 20190118
  11. SIMPONI [Concomitant]
     Active Substance: GOLIMUMAB
     Dosage: UNK
     Dates: start: 201211, end: 201612
  12. HUMIRA [Concomitant]
     Active Substance: ADALIMUMAB
     Indication: PRODUCT USED FOR UNKNOWN INDICATION
     Dosage: UNK
     Route: 065
  13. XELJANZ XR [Concomitant]
     Active Substance: TOFACITINIB CITRATE
     Indication: PSORIATIC ARTHROPATHY
     Dosage: 11 MILLIGRAM, QD
     Route: 048
     Dates: start: 20181122, end: 20190214
  14. XANAX [Concomitant]
     Active Substance: ALPRAZOLAM
     Dosage: 1 DOSAGE FORM, BID
     Route: 048
  15. HYDROCODONE/ACETAMINOPHEN [Concomitant]
     Active Substance: ACETAMINOPHEN\HYDROCODONE
     Dosage: 1 DOSAGE FORM (5-325 MG), QID
     Route: 048
     Dates: start: 20190313
  16. BACTRIM [Concomitant]
     Active Substance: SULFAMETHOXAZOLE\TRIMETHOPRIM
     Indication: PRODUCT USED FOR UNKNOWN INDICATION
     Dosage: UNK
     Route: 065
  17. TIZANIDINE HCL [Concomitant]
     Active Substance: TIZANIDINE HYDROCHLORIDE
     Indication: BACK PAIN
     Dosage: 4 MILLIGRAM, AS NECESSARY (THREE TIMES A DAY)
     Route: 048
     Dates: start: 20181019
  18. XELJANZ [Concomitant]
     Active Substance: TOFACITINIB CITRATE
     Dosage: 5 MILLIGRAM, QD
     Route: 048
     Dates: start: 2019
  19. CELEBREX [Concomitant]
     Active Substance: CELECOXIB
     Indication: PRODUCT USED FOR UNKNOWN INDICATION
     Dosage: UNK
     Route: 065
  20. NAPROXEN. [Concomitant]
     Active Substance: NAPROXEN
     Indication: PRODUCT USED FOR UNKNOWN INDICATION
     Dosage: UNK
     Route: 065
  21. LISINOPRIL. [Concomitant]
     Active Substance: LISINOPRIL
     Dosage: 20 MILLIGRAM, QD
     Route: 048
  22. COSENTYX [Concomitant]
     Active Substance: SECUKINUMAB
     Dosage: UNK; INCREASED DOSE TO 300 MG MONTHLY
     Dates: start: 201612

REACTIONS (18)
  - Herpes zoster [Unknown]
  - Urothelium erosion [Unknown]
  - White blood cell count increased [Unknown]
  - Hypertension [Unknown]
  - Abscess [Recovered/Resolved]
  - Endometrial ablation [Unknown]
  - Iron deficiency anaemia [Unknown]
  - Coeliac disease [Unknown]
  - Cyst removal [Unknown]
  - Vitamin D deficiency [Unknown]
  - Depression [Unknown]
  - Urinary tract infection [Unknown]
  - Colonic abscess [Unknown]
  - Premenstrual dysphoric disorder [Unknown]
  - Diverticulitis [Unknown]
  - Treatment failure [Unknown]
  - Intervertebral disc degeneration [Unknown]
  - Radicular pain [Recovering/Resolving]

NARRATIVE: CASE EVENT DATE: 201210
